FAERS Safety Report 5655708-7 (Version None)
Quarter: 2008Q1

REPORT INFORMATION
  Report Type: 
  Country: None (occurrence: None)
  Receive Date: 20080307
  Receipt Date: 20080226
  Transmission Date: 20080703
  Serious: Yes (Disabling)
  Sender: FDA-Public Use
  Company Number: JP-PFIZER INC-2008016907

PATIENT
  Age: 45 Year
  Sex: Male
  Weight: 75 kg

DRUGS (4)
  1. NORVASC [Suspect]
     Indication: HYPERTENSION
     Route: 048
  2. BLOPRESS [Suspect]
     Indication: HYPERTENSION
     Route: 048
  3. MEVALOTIN [Suspect]
     Indication: HYPERCHOLESTEROLAEMIA
     Dosage: DAILY DOSE:10MG-TEXT:10 MG-FREQ:ONCE DAILY
  4. ALLOPURINOL [Suspect]
     Indication: HYPERURICAEMIA
     Dosage: DAILY DOSE:200MG-TEXT:200 MG-FREQ:TWICE DAILY
     Route: 048

REACTIONS (1)
  - CAPILLARY DISORDER [None]
